FAERS Safety Report 9023669 (Version 4)
Quarter: 2013Q1

REPORT INFORMATION
  Report Type: Report from Study
  Country: US (occurrence: US)
  Receive Date: 20130121
  Receipt Date: 20130326
  Transmission Date: 20140127
  Serious: Yes (Death, Hospitalization, Other)
  Sender: FDA-Public Use
  Company Number: US-ASTELLAS-2013US000654

PATIENT
  Age: 55 Year
  Sex: Male
  Weight: 56 kg

DRUGS (12)
  1. ERLOTINIB TABLET [Suspect]
     Indication: NON-SMALL CELL LUNG CANCER
     Dosage: 100 MG, UID/QD
     Route: 048
     Dates: start: 20121116, end: 20121128
  2. ERLOTINIB TABLET [Suspect]
     Dosage: 50 MG, UID/QD
     Route: 048
     Dates: start: 20121205, end: 20121213
  3. AZD6244 [Suspect]
     Indication: NON-SMALL CELL LUNG CANCER
     Dosage: 150 MG, UID/QD
     Route: 048
     Dates: start: 20121116, end: 20121128
  4. AZD6244 [Suspect]
     Dosage: 150 MG, UID/QD
     Route: 048
     Dates: start: 20121205, end: 20121213
  5. HYDROCHLOROTHIAZIDE [Concomitant]
     Indication: HYPERTENSION
     Dosage: 50 MG, UID/QD
     Route: 048
     Dates: start: 20121121
  6. NADOLOL [Concomitant]
     Indication: HYPERTENSION
     Dosage: 40 MG, UID/QD
     Route: 048
     Dates: start: 2011
  7. LOVENOX [Concomitant]
     Indication: THROMBOSIS
     Dosage: 60 MG, BID
     Route: 065
     Dates: start: 2010
  8. KAYEXALATE [Concomitant]
     Indication: HYPERKALAEMIA
     Dosage: 15G/60ML, BID X 3 DAYS
     Route: 048
     Dates: start: 20121116, end: 20121119
  9. LOMOTIL [Concomitant]
     Indication: DIARRHOEA
     Dosage: 2.5MG/0.025G QID, PRN
     Route: 048
     Dates: start: 20121128
  10. COMPAZINE                          /00013302/ [Concomitant]
     Indication: NAUSEA
     Dosage: 10 MG, TID, PRN
     Route: 048
     Dates: start: 20121130
  11. COMPAZINE                          /00013302/ [Concomitant]
     Indication: VOMITING
  12. NACL [Concomitant]
     Indication: DEHYDRATION
     Dosage: 1000 ML, TOTAL DOSE
     Route: 042
     Dates: start: 20121130, end: 20121130

REACTIONS (7)
  - Incorrect dose administered [Unknown]
  - Diarrhoea [Recovered/Resolved]
  - Diarrhoea [Unknown]
  - Pneumonia aspiration [Unknown]
  - Respiratory failure [Fatal]
  - Malignant neoplasm progression [Fatal]
  - Haematemesis [Unknown]
